FAERS Safety Report 5332792-1 (Version None)
Quarter: 2007Q2

REPORT INFORMATION
  Report Type: 
  Country: None (occurrence: None)
  Receive Date: 20070518
  Receipt Date: 20070510
  Transmission Date: 20071010
  Serious: Yes (Death, Other)
  Sender: FDA-Public Use
  Company Number: 2007S1000219

PATIENT
  Age: 49 Year
  Sex: Male

DRUGS (8)
  1. CUBICIN [Suspect]
     Indication: STAPHYLOCOCCAL BACTERAEMIA
     Dosage: 4 MG/KG; Q24H;
     Dates: start: 20050127, end: 20050202
  2. POVIDONE IODINE [Suspect]
     Dosage: ; TOP
     Route: 061
     Dates: start: 20050101
  3. VANCOMYCIN HCL [Concomitant]
  4. GENTAMICIN [Concomitant]
  5. RIFAMPIN [Concomitant]
  6. AMIKACIN [Concomitant]
  7. CEFTAZIDIME [Concomitant]
  8. METHOTREXATE SODIUM [Concomitant]

REACTIONS (4)
  - APPLICATION SITE REACTION [None]
  - HAEMORRHAGE [None]
  - HYPOVOLAEMIC SHOCK [None]
  - SKIN REACTION [None]
